FAERS Safety Report 5688373-3 (Version None)
Quarter: 2008Q1

REPORT INFORMATION
  Report Type: 
  Country: None (occurrence: None)
  Receive Date: 20080331
  Receipt Date: 20080320
  Transmission Date: 20080703
  Serious: Yes (Other)
  Sender: FDA-Public Use
  Company Number: ZA-JNJFOC-20080207026

PATIENT
  Sex: Female
  Weight: 72 kg

DRUGS (6)
  1. REVELLEX [Suspect]
     Route: 042
  2. REVELLEX [Suspect]
     Indication: RHEUMATOID ARTHRITIS
     Route: 042
  3. ORUVAIL [Concomitant]
  4. METHOTREXATE [Concomitant]
     Route: 058
  5. FOLIC ACID [Concomitant]
     Route: 048
  6. PREDNISONE TAB [Concomitant]

REACTIONS (2)
  - CUTANEOUS TUBERCULOSIS [None]
  - TUBERCULOSIS [None]
